FAERS Safety Report 15255103 (Version 2)
Quarter: 2018Q3

REPORT INFORMATION
  Report Type: Spontaneous
  Country: US (occurrence: US)
  Receive Date: 20180808
  Receipt Date: 20180924
  Transmission Date: 20181010
  Serious: No
  Sender: FDA-Public Use
  Company Number: US-PFIZER INC-2018316090

PATIENT
  Age: 48 Year
  Sex: Female

DRUGS (1)
  1. LYRICA [Suspect]
     Active Substance: PREGABALIN
     Indication: NEURALGIA
     Dosage: 100 MG, THRICE DAILY
     Route: 048
     Dates: start: 2017

REACTIONS (1)
  - Somnolence [Recovering/Resolving]

NARRATIVE: CASE EVENT DATE: 2017
